FAERS Safety Report 6156201-8 (Version None)
Quarter: 2009Q2

REPORT INFORMATION
  Report Type: 
  Country: None (occurrence: None)
  Receive Date: 20090410
  Receipt Date: 20090410
  Transmission Date: 20091009
  Serious: No
  Sender: FDA-Public Use
  Company Number: None

PATIENT

DRUGS (1)
  1. ALLEGRA [Suspect]
     Indication: RHINITIS ALLERGIC
     Dosage: ONE A DAY 30 DAYS
     Dates: start: 20060101

REACTIONS (1)
  - DRUG INEFFECTIVE [None]
